FAERS Safety Report 5589983-4 (Version None)
Quarter: 2008Q1

REPORT INFORMATION
  Report Type: 
  Country: None (occurrence: None)
  Receive Date: 20080114
  Receipt Date: 20080102
  Transmission Date: 20080703
  Serious: Yes (Other)
  Sender: FDA-Public Use
  Company Number: IL-ROCHE-539437

PATIENT
  Age: 33 Year
  Sex: Female
  Weight: 49 kg

DRUGS (3)
  1. ROACCUTANE [Suspect]
     Indication: ACNE
     Route: 048
     Dates: start: 20070701, end: 20070901
  2. ROACCUTANE [Suspect]
     Route: 048
     Dates: start: 20070901, end: 20071001
  3. ROACCUTANE [Suspect]
     Route: 048
     Dates: start: 20071001, end: 20071217

REACTIONS (2)
  - NO ADVERSE EVENT [None]
  - PREGNANCY [None]
